FAERS Safety Report 5287858-1 (Version None)
Quarter: 2007Q2

REPORT INFORMATION
  Report Type: 
  Country: None (occurrence: None)
  Receive Date: 20070403
  Receipt Date: 20070403
  Transmission Date: 20071010
  Serious: No
  Sender: FDA-Public Use
  Company Number: None

PATIENT
  Sex: Female
  Weight: 64.4108 kg

DRUGS (3)
  1. FLUOXETINE [Suspect]
     Indication: DEPRESSION
     Dosage: 20MG QD  PO  SEVERAL ATTEMPTS OVER LAST 2 YRS
     Route: 048
  2. ESTRATEST [Concomitant]
  3. ZYRTEC [Concomitant]

REACTIONS (4)
  - AFFECT LABILITY [None]
  - ANGER [None]
  - DEPRESSION [None]
  - PHARMACEUTICAL PRODUCT COMPLAINT [None]
